FAERS Safety Report 9223147 (Version 1)
Quarter: 2013Q2

REPORT INFORMATION
  Report Type: Report from Study
  Country: ES (occurrence: ES)
  Receive Date: 20130410
  Receipt Date: 20130410
  Transmission Date: 20140414
  Serious: Yes (Death, Other)
  Sender: FDA-Public Use
  Company Number: ES-ROCHE-1211434

PATIENT
  Sex: 0

DRUGS (2)
  1. ALTEPLASE [Suspect]
     Indication: CEREBRAL ARTERY OCCLUSION
     Route: 042
  2. ALTEPLASE [Suspect]
     Indication: ISCHAEMIC STROKE

REACTIONS (6)
  - Death [Fatal]
  - Drug ineffective [Unknown]
  - Drug effect decreased [Unknown]
  - Reocclusion [Unknown]
  - Haemorrhagic transformation stroke [Unknown]
  - Haemorrhage intracranial [Unknown]
